FAERS Safety Report 7022331-1 (Version None)
Quarter: 2010Q3

REPORT INFORMATION
  Report Type: 
  Country: None (occurrence: None)
  Receive Date: 20100930
  Receipt Date: 20100922
  Transmission Date: 20110219
  Serious: Yes (Hospitalization)
  Sender: FDA-Public Use
  Company Number: PT-BAXTER-2010BH024359

PATIENT
  Age: 83 Year
  Sex: Female

DRUGS (1)
  1. EXTRANEAL [Suspect]
     Indication: PERITONEAL DIALYSIS
     Route: 033
     Dates: start: 20100727

REACTIONS (3)
  - BRADYCARDIA [None]
  - CARDIAC FAILURE [None]
  - PERITONITIS BACTERIAL [None]
